FAERS Safety Report 10452364 (Version 2)
Quarter: 2014Q3

REPORT INFORMATION
  Report Type: Spontaneous
  Country: US (occurrence: US)
  Receive Date: 20140915
  Receipt Date: 20140918
  Transmission Date: 20150326
  Serious: Yes (Hospitalization)
  Sender: FDA-Public Use
  Company Number: US-PURDUE-USA-2014-0117025

PATIENT
  Age: 79 Year
  Sex: Male
  Weight: 80.27 kg

DRUGS (12)
  1. FUROSEMIDE. [Concomitant]
     Active Substance: FUROSEMIDE
  2. MS CONTIN [Suspect]
     Active Substance: MORPHINE SULFATE
     Indication: GOUT
     Dosage: 15 MG, BID
     Dates: start: 20140722
  3. OXYCODONE HYDROCHLORIDE (SIMILAR TO NDA 22-272) [Suspect]
     Active Substance: OXYCODONE HYDROCHLORIDE
     Indication: GOUT
  4. K-TAB [Concomitant]
     Active Substance: POTASSIUM CHLORIDE
  5. OXYCODONE HYDROCHLORIDE (SIMILAR TO NDA 22-272) [Suspect]
     Active Substance: OXYCODONE HYDROCHLORIDE
     Indication: PAIN IN EXTREMITY
     Dosage: 10 MG, Q4H PRN
     Route: 048
  6. PROVENGE [Suspect]
     Active Substance: SIPULEUCEL-T
     Indication: PROSTATE CANCER
     Dosage: 250 ML, SINGLE
     Route: 042
     Dates: start: 20140718
  7. CEFUROXIME. [Concomitant]
     Active Substance: CEFUROXIME
  8. VENLAFAXINE HYDROCHLORIDE. [Concomitant]
     Active Substance: VENLAFAXINE HYDROCHLORIDE
  9. TAMSULOSIN [Concomitant]
     Active Substance: TAMSULOSIN
  10. ADVIL [Concomitant]
     Active Substance: IBUPROFEN
  11. METOPROLOL TARTRATE. [Concomitant]
     Active Substance: METOPROLOL TARTRATE
  12. MS CONTIN [Suspect]
     Active Substance: MORPHINE SULFATE
     Indication: PAIN IN EXTREMITY
     Dosage: 15 MG, HS
     Route: 048
     Dates: start: 20140718

REACTIONS (9)
  - Mental status changes [Recovered/Resolved]
  - Pneumonia [Recovered/Resolved]
  - Bladder neck obstruction [Unknown]
  - Urinary tract infection [Recovered/Resolved]
  - Hyponatraemia [Recovered/Resolved]
  - Renal failure acute [Unknown]
  - Anaemia [Unknown]
  - Dehydration [Recovered/Resolved]
  - Atrial tachycardia [Recovered/Resolved]

NARRATIVE: CASE EVENT DATE: 20140729
